FAERS Safety Report 4789034-5 (Version None)
Quarter: 2005Q4

REPORT INFORMATION
  Report Type: 
  Country: None (occurrence: None)
  Receive Date: 20051004
  Receipt Date: 20050829
  Transmission Date: 20060501
  Serious: No
  Sender: FDA-Public Use
  Company Number: 05-0103SU

PATIENT
  Age: 99 Year
  Sex: Female
  Weight: 67.1324 kg

DRUGS (7)
  1. SULAR [Suspect]
     Indication: HYPERTENSION
     Dosage: 20 MG
     Dates: start: 20040801, end: 20050901
  2. ZOCOR [Suspect]
     Indication: HYPERCHOLESTEROLAEMIA
     Dates: start: 20050801
  3. ZOCOR [Concomitant]
  4. MAXZIDE [Concomitant]
  5. ISOSORBIDE [Concomitant]
  6. SYNTHROID [Concomitant]
  7. ASPIRIN [Concomitant]

REACTIONS (3)
  - ABDOMINAL PAIN UPPER [None]
  - ASTHENIA [None]
  - FALL [None]
